FAERS Safety Report 5281110-6 (Version None)
Quarter: 2007Q1

REPORT INFORMATION
  Report Type: 
  Country: None (occurrence: None)
  Receive Date: 20070323
  Receipt Date: 20070313
  Transmission Date: 20070707
  Serious: Yes (Other)
  Sender: FDA-Public Use
  Company Number: B0462394A

PATIENT
  Age: 31 Year
  Sex: Female

DRUGS (2)
  1. PAXIL [Suspect]
     Indication: DEPRESSION
     Dosage: 20 MG PER DAY
  2. ZOLPIDEM [Concomitant]

REACTIONS (6)
  - BRUXISM [None]
  - DEPRESSED MOOD [None]
  - EXTRAPYRAMIDAL DISORDER [None]
  - MUSCLE CONTRACTIONS INVOLUNTARY [None]
  - NERVOUSNESS [None]
  - TREMOR [None]
